FAERS Safety Report 23861988 (Version 1)
Quarter: 2024Q2

REPORT INFORMATION
  Report Type: Spontaneous
  Country: US (occurrence: None)
  Receive Date: 20240515
  Receipt Date: 20240515
  Transmission Date: 20240716
  Serious: Yes (Other)
  Sender: FDA-Public Use
  Company Number: None

PATIENT
  Age: 46 Year
  Sex: Female

DRUGS (1)
  1. BENLYSTA [Suspect]
     Active Substance: BELIMUMAB
     Indication: Systemic lupus erythematosus
     Dosage: OTHER QUANTITY : INJECT 1 PEN ;?FREQUENCY : AS DIRECTED;?
     Route: 058
     Dates: start: 20230411

REACTIONS (2)
  - Surgery [None]
  - Intentional dose omission [None]

NARRATIVE: CASE EVENT DATE: 20240506
